FAERS Safety Report 7677580-6 (Version None)
Quarter: 2011Q3

REPORT INFORMATION
  Report Type: 
  Country: None (occurrence: None)
  Receive Date: 20110811
  Receipt Date: 20110811
  Transmission Date: 20111222
  Serious: Yes (Hospitalization)
  Sender: FDA-Public Use
  Company Number: None

PATIENT
  Sex: Female
  Weight: 61.1 kg

DRUGS (1)
  1. DABIGATRAN [Suspect]
     Indication: ATRIAL FIBRILLATION
     Dates: start: 20110701, end: 20110727

REACTIONS (4)
  - UPPER GASTROINTESTINAL HAEMORRHAGE [None]
  - TRANSFUSION RELATED COMPLICATION [None]
  - PULMONARY OEDEMA [None]
  - INTERNATIONAL NORMALISED RATIO INCREASED [None]
